FAERS Safety Report 9907318 (Version 1)
Quarter: 2014Q1

REPORT INFORMATION
  Report Type: Spontaneous
  Country: GR (occurrence: GR)
  Receive Date: 20140218
  Receipt Date: 20140218
  Transmission Date: 20141002
  Serious: No
  Sender: FDA-Public Use
  Company Number: GR-ABBVIE-14P-066-1202802-00

PATIENT
  Sex: Male

DRUGS (2)
  1. HUMIRA [Suspect]
     Indication: ANKYLOSING SPONDYLITIS
     Route: 058
     Dates: end: 201311
  2. HUMIRA [Suspect]

REACTIONS (2)
  - Prostatic specific antigen increased [Recovered/Resolved]
  - Prostatic specific antigen increased [Not Recovered/Not Resolved]
